FAERS Safety Report 20204458 (Version 3)
Quarter: 2024Q1

REPORT INFORMATION
  Report Type: Spontaneous
  Country: GB (occurrence: GB)
  Receive Date: 20211220
  Receipt Date: 20240109
  Transmission Date: 20240409
  Serious: Yes (Hospitalization, Other)
  Sender: FDA-Public Use
  Company Number: GB-CELGENE-GBR-20211107738

PATIENT
  Age: 53 Year
  Weight: 78 kg

DRUGS (41)
  1. BORTEZOMIB [Suspect]
     Active Substance: BORTEZOMIB
     Indication: Plasma cell myeloma
     Dosage: DURATION: 11 DAYS
     Route: 058
     Dates: start: 20210611, end: 20210621
  2. BUDESONIDE\FORMOTEROL [Concomitant]
     Active Substance: BUDESONIDE\FORMOTEROL
     Indication: Asthma prophylaxis
     Dosage: (160/4.5) (2 DOSAGE FORMS, 1 IN 0.5 D)
     Route: 065
     Dates: start: 20150911
  3. BUDESONIDE\FORMOTEROL [Concomitant]
     Active Substance: BUDESONIDE\FORMOTEROL
     Indication: Asthma prophylaxis
     Route: 065
     Dates: start: 20210524
  4. FEXOFENADINE [Concomitant]
     Active Substance: FEXOFENADINE HYDROCHLORIDE
     Indication: Seasonal allergy
     Route: 048
     Dates: start: 20050901
  5. FLUDARABINE [Concomitant]
     Active Substance: FLUDARABINE PHOSPHATE
     Indication: Plasma cell myeloma
     Dosage: UNK
     Route: 065
  6. FUROSEMIDE [Concomitant]
     Active Substance: FUROSEMIDE
     Indication: Diuretic therapy
     Dosage: TIME INTERVAL: AS NECESSARY: DURATION: 48 DAYS
     Route: 048
     Dates: start: 20210426, end: 20210613
  7. GABAPENTIN [Concomitant]
     Active Substance: GABAPENTIN
     Indication: Peripheral sensory neuropathy
     Dosage: TIME INTERVAL: 0.333 DAYS: 900 MILLIGRAM, 3 IN 1 DAY; TIME INTERVAL: 0.33 D, DURATION: 102 DAYS
     Route: 048
     Dates: start: 20210507, end: 20210817
  8. GABAPENTIN [Concomitant]
     Active Substance: GABAPENTIN
     Indication: Peripheral sensory neuropathy
     Dosage: DURATION: 102 DAYS
     Route: 048
     Dates: start: 20210701, end: 20210820
  9. GABAPENTIN [Concomitant]
     Active Substance: GABAPENTIN
     Indication: Peripheral sensory neuropathy
     Dosage: DURATION: 102 DAYS
     Route: 048
     Dates: end: 20210729
  10. MONTELUKAST [Concomitant]
     Active Substance: MONTELUKAST SODIUM
     Indication: Asthma prophylaxis
     Route: 048
     Dates: start: 20210524
  11. MORPHINE SULFATE [Concomitant]
     Active Substance: MORPHINE SULFATE
     Indication: Back pain
     Dosage: DURATION: 1 DAYS
     Route: 048
     Dates: start: 20210613, end: 20210613
  12. MORPHINE SULFATE [Concomitant]
     Active Substance: MORPHINE SULFATE
     Indication: Back pain
     Dosage: DURATION: 22 DAYS
     Route: 048
     Dates: start: 20210604, end: 20210626
  13. MORPHINE SULFATE [Concomitant]
     Active Substance: MORPHINE SULFATE
     Indication: Back pain
     Dosage: AS REQUIRED, DURATION: 2 DAYS
     Route: 048
     Dates: start: 20210614, end: 20210616
  14. MORPHINE SULFATE [Concomitant]
     Active Substance: MORPHINE SULFATE
     Indication: Back pain
     Dosage: DURATION: 2 DAYS
     Route: 048
     Dates: start: 20210629, end: 20210630
  15. NITROFURANTOIN [Concomitant]
     Active Substance: NITROFURANTOIN
     Indication: Urinary tract infection
     Route: 048
     Dates: start: 20210706, end: 20210708
  16. NITROFURANTOIN [Concomitant]
     Active Substance: NITROFURANTOIN
     Indication: Urinary tract infection
     Route: 048
     Dates: start: 20210609, end: 20210615
  17. ACETAMINOPHEN [Concomitant]
     Active Substance: ACETAMINOPHEN
     Indication: Back pain
     Dosage: 1GM AS REQUIRED QID (4 GRAM), DURATION: 2634 DAYS.
     Route: 048
     Dates: start: 20140323, end: 20210607
  18. ACETAMINOPHEN [Concomitant]
     Active Substance: ACETAMINOPHEN
     Indication: Back pain
     Dosage: 1GM AS REQUIRED QID (4 GRAM)
     Route: 048
     Dates: start: 20210626
  19. ALBUTEROL [Concomitant]
     Active Substance: ALBUTEROL
     Indication: Asthma prophylaxis
     Dosage: TIME INTERVAL: AS NECESSARY: 100 MCG,1 IN 1 AS REQUIRED
     Route: 055
  20. DEXAMETHASONE [Suspect]
     Active Substance: DEXAMETHASONE
     Indication: Plasma cell myeloma
     Route: 048
     Dates: start: 20210611, end: 20210612
  21. CLODRONIC ACID [Concomitant]
     Active Substance: CLODRONIC ACID
     Indication: Prophylaxis
     Dosage: DURATION: 49 DAYS
     Route: 048
     Dates: start: 20210426, end: 20210614
  22. FLUCONAZOLE [Concomitant]
     Active Substance: FLUCONAZOLE
     Indication: Antifungal prophylaxis
     Route: 048
     Dates: start: 20210613
  23. FLUCONAZOLE [Concomitant]
     Active Substance: FLUCONAZOLE
     Indication: Antifungal prophylaxis
     Dosage: DURATION: 164 DAYS
     Route: 048
     Dates: start: 20210101, end: 20210613
  24. POLYETHYLENE GLYCOL 3350\POTASSIUM CHLORIDE\SODIUM BICARBONATE\SODIUM [Concomitant]
     Active Substance: POLYETHYLENE GLYCOL 3350\POTASSIUM CHLORIDE\SODIUM BICARBONATE\SODIUM CHLORIDE
     Indication: Constipation
     Dosage: UNK; DURATION: 66 DAYS
     Route: 048
     Dates: start: 20210426, end: 20210701
  25. OMEPRAZOLE [Concomitant]
     Active Substance: OMEPRAZOLE
     Indication: Hiatus hernia
     Route: 048
     Dates: start: 20100820
  26. ONDANSETRON [Concomitant]
     Active Substance: ONDANSETRON
     Indication: Antiemetic supportive care
     Dosage: DURATION: 24 DAYS
     Route: 048
     Dates: start: 20210701, end: 20210725
  27. ONDANSETRON [Concomitant]
     Active Substance: ONDANSETRON
     Indication: Antiemetic supportive care
     Dosage: DURATION: 43 DAYS
     Route: 048
     Dates: start: 20210701, end: 20210812
  28. SENNA [Concomitant]
     Active Substance: SENNA LEAF\SENNOSIDES\SENNOSIDES A AND B
     Indication: Constipation
     Dosage: TIME INTERVAL: AS NECESSARY: 15 MG,1 IN 1 AS REQUIRED
     Route: 048
     Dates: end: 20210613
  29. CILTACABTAGENE AUTOLEUCEL [Suspect]
     Active Substance: CILTACABTAGENE AUTOLEUCEL
     Indication: Plasma cell myeloma
     Route: 041
  30. POMALYST [Suspect]
     Active Substance: POMALIDOMIDE
     Indication: Plasma cell myeloma
     Dosage: DURATION:14 DAYS
     Route: 048
     Dates: start: 20210611, end: 20210624
  31. ACYCLOVIR [Concomitant]
     Active Substance: ACYCLOVIR
     Indication: Antiviral prophylaxis
     Route: 048
  32. ACYCLOVIR [Concomitant]
     Active Substance: ACYCLOVIR
     Indication: Antiviral prophylaxis
     Dosage: 800 MILLIGRAM, DURATION: 204 DAYS
     Route: 048
     Dates: start: 20210414, end: 20211103
  33. AMITRIPTYLINE [Concomitant]
     Active Substance: AMITRIPTYLINE
     Indication: Peripheral sensory neuropathy
     Dosage: DURATION: 203 DAYS
     Route: 048
     Dates: start: 20210414, end: 20211103
  34. CARBOMER [Concomitant]
     Active Substance: CARBOMER
     Indication: Dry eye
     Dosage: TIME INTERVAL: AS NECESSARY: 1 GTT, AS REQUIRED.
     Route: 047
     Dates: start: 20171030, end: 20210613
  35. CYCLOPHOSPHAMIDE [Concomitant]
     Active Substance: CYCLOPHOSPHAMIDE
     Indication: Plasma cell myeloma
     Route: 065
  36. DALTEPARIN [Concomitant]
     Active Substance: DALTEPARIN
     Indication: Thrombosis prophylaxis
     Dosage: FORM STRENGTH: 5000
     Route: 058
     Dates: end: 20210612
  37. DALTEPARIN [Concomitant]
     Active Substance: DALTEPARIN
     Indication: Thrombosis prophylaxis
     Dosage: FORM STRENGTH: 5000
     Route: 058
     Dates: start: 20220612
  38. POMALIDOMIDE [Suspect]
     Active Substance: POMALIDOMIDE
     Indication: Plasma cell myeloma
     Dosage: DURATION: 3 DAYS
     Route: 048
     Dates: start: 20210611, end: 20210613
  39. LIDOCAINE [Concomitant]
     Active Substance: LIDOCAINE
     Indication: Chest pain
     Dosage: DURATION: 65 DAYS
     Route: 050
     Dates: start: 20210629, end: 20210901
  40. ZOLEDRONIC ACID [Concomitant]
     Active Substance: ZOLEDRONIC ACID
     Indication: Hypercalcaemia
     Dosage: DURATION: 1 DAYS
     Route: 050
     Dates: start: 20210611, end: 20210611
  41. ZOLEDRONIC ACID [Concomitant]
     Active Substance: ZOLEDRONIC ACID
     Indication: Hypercalcaemia
     Dosage: DURATION: 1 DAYS
     Route: 050
     Dates: start: 20210702, end: 20210702

REACTIONS (2)
  - Pneumonia [Recovered/Resolved]
  - Lower respiratory tract infection [Recovered/Resolved]

NARRATIVE: CASE EVENT DATE: 20210613
